FAERS Safety Report 9318635 (Version 1)
Quarter: 2013Q2

REPORT INFORMATION
  Report Type: Spontaneous
  Country: US (occurrence: None)
  Receive Date: 20130529
  Receipt Date: 20130529
  Transmission Date: 20140414
  Serious: Yes (Death, Life-Threatening, Hospitalization)
  Sender: FDA-Public Use
  Company Number: None

PATIENT
  Age: 82 Year
  Sex: Female
  Weight: 90.22 kg

DRUGS (49)
  1. BORTEZOMIB [Suspect]
     Indication: ACUTE MYELOID LEUKAEMIA
     Dosage: SQ 1.5MG/M2 D 1,4,8,11
     Dates: start: 20130517
  2. DOXORUBICIN [Suspect]
     Indication: ACUTE MYELOID LEUKAEMIA
     Dosage: IV 40MG/M2 D4
     Dates: start: 20130521
  3. TYLENOL [Concomitant]
  4. ACYCLOVIR [Concomitant]
  5. ALLOPURINOL [Concomitant]
  6. CATHFLO ACTIVASE [Concomitant]
  7. BUMETANIDE [Concomitant]
  8. CALCIUM CARBONATE [Concomitant]
  9. CALCIUM GLUCONADE [Concomitant]
  10. CHLORHEXIDINE [Concomitant]
  11. APRESOLINE [Concomitant]
  12. HYDROCODONE [Concomitant]
  13. INSULIN [Concomitant]
  14. ATROVENT [Concomitant]
  15. DUO-NEB [Concomitant]
  16. ATIVAN [Concomitant]
  17. TAMIFLU [Concomitant]
  18. OXYCODONE [Concomitant]
  19. CHLORASEPTIC [Concomitant]
  20. POSTASSIUM [Concomitant]
  21. VANCOMYCIN [Concomitant]
  22. VFEND [Concomitant]
  23. PHENYLEPHRINE [Concomitant]
  24. PROPOFOL [Concomitant]
  25. ZEMURON [Concomitant]
  26. DILTIAZEM [Concomitant]
  27. BENADRYL [Concomitant]
  28. EPINEPHRINE [Concomitant]
  29. NEXIUM [Concomitant]
  30. AMIDATE [Concomitant]
  31. PEPCID [Concomitant]
  32. FENTANYL [Concomitant]
  33. LASIX [Concomitant]
  34. GLUCAGON [Concomitant]
  35. MG OXIDATE [Concomitant]
  36. MG SULFATE [Concomitant]
  37. MERREM [Concomitant]
  38. METOPROLOL [Concomitant]
  39. ZOFRAN [Concomitant]
  40. PREDISONE [Concomitant]
  41. COMPAZIE [Concomitant]
  42. DIPRIVAN [Concomitant]
  43. CEFEPIME [Concomitant]
  44. LIDOCAINE [Concomitant]
  45. VERSED [Concomitant]
  46. PROTONIX [Concomitant]
  47. NEBCIN [Concomitant]
  48. TRIMETROPRIM [Concomitant]
  49. BACTRUM [Concomitant]

REACTIONS (8)
  - Tachycardia [None]
  - Dyspnoea [None]
  - Lung infiltration [None]
  - Hypoxia [None]
  - Bronchial secretion retention [None]
  - Respiratory failure [None]
  - Pneumonia [None]
  - Disease complication [None]
